FAERS Safety Report 17855038 (Version 2)
Quarter: 2020Q3

REPORT INFORMATION
  Report Type: Spontaneous
  Country: SE (occurrence: SE)
  Receive Date: 20200603
  Receipt Date: 20200703
  Transmission Date: 20201103
  Serious: Yes (Hospitalization, Disabling)
  Sender: FDA-Public Use
  Company Number: SE-ACCORD-183919

PATIENT
  Age: 78 Year
  Sex: Female
  Weight: 56 kg

DRUGS (4)
  1. FOLINIC ACID [Concomitant]
     Active Substance: LEUCOVORIN
     Dosage: 625 MG FOR 60 MINUTES ON THE SAME DAY AS FLUOROURACIL ADM
     Dates: start: 20190122, end: 20190529
  2. FLUOROURACIL. [Suspect]
     Active Substance: FLUOROURACIL
     Indication: PRODUCT USED FOR UNKNOWN INDICATION
     Dosage: 350 MG FOR 5 MINUTES FOLLOWED BY 2250 MG FOR 44 HOURS
     Dates: start: 20190515, end: 20190529
  3. FLUOROURACIL. [Suspect]
     Active Substance: FLUOROURACIL
     Indication: COLON CANCER
     Dosage: 600 MG FOR 5 MINUTES FOLLOWED BY 3750 MG FOR 44 HOURS
     Dates: start: 20190122, end: 20190319
  4. FLUOROURACIL. [Suspect]
     Active Substance: FLUOROURACIL
     Indication: ADJUVANT THERAPY
     Dosage: 3750 MG PER 14 DAYS, 5?FLUOROURACIL
     Dates: start: 20190402, end: 20190430

REACTIONS (10)
  - Vision blurred [Not Recovered/Not Resolved]
  - Memory impairment [Not Recovered/Not Resolved]
  - Bone disorder [Not Recovered/Not Resolved]
  - Balance disorder [Not Recovered/Not Resolved]
  - Ageusia [Not Recovered/Not Resolved]
  - Palmar-plantar erythrodysaesthesia syndrome [Not Recovered/Not Resolved]
  - Myelosuppression [Unknown]
  - Lacrimation increased [Not Recovered/Not Resolved]
  - Hyposmia [Not Recovered/Not Resolved]
  - Pain [Not Recovered/Not Resolved]

NARRATIVE: CASE EVENT DATE: 2019
